FAERS Safety Report 8159060 (Version 2)
Quarter: 2015Q2

REPORT INFORMATION
  Report Type: Spontaneous
  Country: US (occurrence: US)
  Receive Date: 20110927
  Receipt Date: 20150512
  Transmission Date: 20150821
  Serious: Yes (Life-Threatening, Hospitalization, Congenital Anomaly)
  Sender: FDA-Public Use
  Company Number: US-ELI_LILLY_AND_COMPANY-US201109004190

PATIENT
  Age: 4 Day
  Weight: 3.63 kg

DRUGS (3)
  1. PROZAC [Suspect]
     Active Substance: FLUOXETINE HYDROCHLORIDE
     Indication: DEPRESSION
     Route: 064
  2. MYLANTA                            /00036701/ [Concomitant]
     Indication: DYSPEPSIA
     Dosage: UNK
     Route: 065
     Dates: start: 199802
  3. RHOGAM [Concomitant]
     Active Substance: HUMAN RHO(D) IMMUNE GLOBULIN
     Indication: RHESUS ANTIBODIES NEGATIVE
     Dosage: UNK
     Route: 065
     Dates: start: 19980425

REACTIONS (12)
  - Hypoxia [Recovered/Resolved]
  - Hypoplastic left heart syndrome [Unknown]
  - Bradycardia [Recovered/Resolved]
  - Incision site pain [Recovered/Resolved]
  - Post procedural haematoma [Unknown]
  - Post procedural haematoma [Unknown]
  - Cellulitis [Recovered/Resolved]
  - Foetal exposure during pregnancy [Unknown]
  - Tachycardia [Recovered/Resolved]
  - Atrial septal defect [Unknown]
  - Wound infection [Recovered/Resolved]
  - Procedural haemorrhage [Recovered/Resolved]

NARRATIVE: CASE EVENT DATE: 19980706
